FAERS Safety Report 7659211-4 (Version None)
Quarter: 2011Q3

REPORT INFORMATION
  Report Type: 
  Country: None (occurrence: None)
  Receive Date: 20110805
  Receipt Date: 20110726
  Transmission Date: 20111222
  Serious: Yes (Hospitalization, Other)
  Sender: FDA-Public Use
  Company Number: US-AMGEN-USASP2011038075

PATIENT
  Sex: Male

DRUGS (3)
  1. ENBREL [Suspect]
     Indication: PRODUCT USED FOR UNKNOWN INDICATION
  2. ENBREL [Suspect]
     Indication: PSORIASIS
     Dosage: 25 MG, 2 TIMES/WK
     Dates: start: 20021215
  3. METHOTREXATE [Concomitant]
     Dosage: UNK

REACTIONS (8)
  - HEPATIC CIRRHOSIS [None]
  - EMPHYSEMA [None]
  - ARTHRALGIA [None]
  - DRY SKIN [None]
  - MUSCLE SPASMS [None]
  - ASTHMA [None]
  - DYSPNOEA [None]
  - CARDIAC FAILURE CONGESTIVE [None]
